FAERS Safety Report 19477993 (Version 1)
Quarter: 2021Q2

REPORT INFORMATION
  Report Type: Spontaneous
  Country: US (occurrence: US)
  Receive Date: 20210630
  Receipt Date: 20210630
  Transmission Date: 20210717
  Serious: Yes (Hospitalization)
  Sender: FDA-Public Use
  Company Number: US-B.I. PHARMACEUTICALS,INC./RIDGEFIELD-2021-BI-112193

PATIENT
  Age: 73 Year
  Sex: Female

DRUGS (1)
  1. SPIRIVA RESPIMAT [Suspect]
     Active Substance: TIOTROPIUM BROMIDE
     Indication: PRODUCT USED FOR UNKNOWN INDICATION
     Dosage: 2.5MCG; 1 TO 2 PUFFS DAILY AS NEEDED
     Route: 065
     Dates: start: 2016

REACTIONS (4)
  - Intervertebral disc protrusion [Recovered/Resolved]
  - Product use issue [Unknown]
  - Device malfunction [Unknown]
  - Product quality issue [Unknown]

NARRATIVE: CASE EVENT DATE: 20210521
